FAERS Safety Report 4263639-2 (Version None)
Quarter: 2004Q1

REPORT INFORMATION
  Report Type: 
  Country: None (occurrence: None)
  Receive Date: 20040102
  Receipt Date: 20031219
  Transmission Date: 20041129
  Serious: Yes (Other)
  Sender: FDA-Public Use
  Company Number: 2003126472

PATIENT
  Age: 56 Year
  Sex: Female

DRUGS (4)
  1. RELPAX [Suspect]
     Indication: MIGRAINE
     Dosage: ORAL
     Route: 048
     Dates: start: 20031126, end: 20031126
  2. DOMPERIDONE (DOMPERIDONE) [Concomitant]
  3. MERSYNDOL /OLD FORM/ (CODEINE PHOSPHATE, CAFFEINE, PARACETAMOL, DOXYLA [Concomitant]
  4. ESTRADIOL [Concomitant]

REACTIONS (1)
  - VITREOUS DETACHMENT [None]
